FAERS Safety Report 4595165-5 (Version None)
Quarter: 2005Q1

REPORT INFORMATION
  Report Type: 
  Country: None (occurrence: None)
  Receive Date: 20050224
  Receipt Date: 20050209
  Transmission Date: 20050727
  Serious: Yes (Other)
  Sender: FDA-Public Use
  Company Number: 2005S1000491

PATIENT
  Age: 58 Year
  Sex: Female
  Weight: 81.6475 kg

DRUGS (8)
  1. TAMOXIFEN CITRATE [Suspect]
     Indication: BREAST CANCER
     Dosage: 20 MG QD, ORAL
     Route: 048
     Dates: start: 20030501
  2. ATORVASTATIN [Concomitant]
  3. LEVOTHYROXINE [Concomitant]
  4. LOSARTAN POTASSIUM [Concomitant]
  5. ALENDRONATE SODIUM [Concomitant]
  6. FOLIC ACID [Concomitant]
  7. VITAMIN E [Concomitant]
  8. VITAMIN C [Concomitant]

REACTIONS (5)
  - DRY SKIN [None]
  - HAIR TEXTURE ABNORMAL [None]
  - HOT FLUSH [None]
  - VAGINAL MYCOSIS [None]
  - VULVOVAGINAL DRYNESS [None]
